FAERS Safety Report 19881392 (Version 3)
Quarter: 2025Q1

REPORT INFORMATION
  Report Type: Report from Study
  Country: DE (occurrence: DE)
  Receive Date: 20210925
  Receipt Date: 20250312
  Transmission Date: 20250409
  Serious: No
  Sender: TAKEDA
  Company Number: DE-TAKEDA-2020TUS049514

PATIENT
  Age: 48 Year
  Sex: Male

DRUGS (14)
  1. TEDUGLUTIDE [Suspect]
     Active Substance: TEDUGLUTIDE
     Indication: Short-bowel syndrome
     Dosage: 3.7 MILLIGRAM, QD
     Dates: start: 20150903, end: 20170316
  2. TEDUGLUTIDE [Suspect]
     Active Substance: TEDUGLUTIDE
     Dosage: 3.7 MILLIGRAM, QD
     Dates: start: 20170505
  3. TEDUGLUTIDE [Suspect]
     Active Substance: TEDUGLUTIDE
  4. TEDUGLUTIDE [Suspect]
     Active Substance: TEDUGLUTIDE
  5. DEXFOSFOSERINE [Concomitant]
     Active Substance: DEXFOSFOSERINE
     Indication: Vitamin B complex deficiency
     Dosage: 999 MILLIGRAM, QD
     Dates: start: 20190618, end: 20210913
  6. GLUTAMINE [Concomitant]
     Active Substance: GLUTAMINE
     Indication: Vitamin B complex deficiency
     Dosage: 999 MILLIGRAM, QD
     Dates: start: 20190618, end: 20210913
  7. D3 vicotrat [Concomitant]
     Indication: Vitamin D deficiency
  8. PANCRELIPASE [Concomitant]
     Active Substance: PANCRELIPASE
     Indication: Prophylaxis
     Dosage: 25000 INTERNATIONAL UNIT, BID
  9. COLESEVELAM HYDROCHLORIDE [Concomitant]
     Active Substance: COLESEVELAM HYDROCHLORIDE
     Indication: Pruritus
     Dosage: 625 MILLIGRAM, BID
  10. POTASSIUM IODIDE [Concomitant]
     Active Substance: POTASSIUM IODIDE
     Indication: Iodine deficiency
     Dosage: 100 MICROGRAM, QD
  11. CYANOCOBALAMIN [Concomitant]
     Active Substance: CYANOCOBALAMIN
     Indication: Vitamin B12 deficiency
     Dosage: 30 MILLIGRAM, QD
     Dates: start: 20190618, end: 20210913
  12. DEXFOSFOSERINE [Concomitant]
     Active Substance: DEXFOSFOSERINE
     Indication: Vitamin B complex deficiency
     Dosage: 999 MILLIGRAM, QD
     Dates: start: 20190618, end: 20210913
  13. GLUTAMINE [Concomitant]
     Active Substance: GLUTAMINE
     Indication: Vitamin B complex deficiency
     Dosage: 999 MILLIGRAM, QD
     Dates: start: 20190618, end: 20210613
  14. PROLIA [Concomitant]
     Active Substance: DENOSUMAB
     Indication: Osteoporosis

REACTIONS (3)
  - Tooth infection [Recovered/Resolved]
  - Haematuria [Recovered/Resolved]
  - Large intestine polyp [Recovered/Resolved]

NARRATIVE: CASE EVENT DATE: 20200904
